FAERS Safety Report 5603130-1 (Version None)
Quarter: 2008Q1

REPORT INFORMATION
  Report Type: 
  Country: None (occurrence: None)
  Receive Date: 20080123
  Receipt Date: 20080116
  Transmission Date: 20080703
  Serious: Yes (Hospitalization)
  Sender: FDA-Public Use
  Company Number: A0666634A

PATIENT
  Age: 58 Year
  Sex: Female
  Weight: 92.9874 kg

DRUGS (3)
  1. PHENYLEPHRINE HYDROCHLORIDE (FORMULATION UNKNOWN) NON-DROW (PHENYLEPHR [Suspect]
     Indication: RHINORRHOEA
     Dosage: SIGNLE DOSE / ORAL
     Route: 048
     Dates: start: 20070707, end: 20070707
  2. SOTALOL HYDROCHLORIDE [Concomitant]
  3. WARFARIN SODIUM [Concomitant]

REACTIONS (12)
  - ASTHENIA [None]
  - ATRIAL FIBRILLATION [None]
  - DRUG INEFFECTIVE [None]
  - EXPIRED DRUG ADMINISTERED [None]
  - HEART RATE INCREASED [None]
  - HEART RATE IRREGULAR [None]
  - HYPERHIDROSIS [None]
  - LOBAR PNEUMONIA [None]
  - MALAISE [None]
  - POOR QUALITY SLEEP [None]
  - SPEECH DISORDER [None]
  - TREATMENT NONCOMPLIANCE [None]
